FAERS Safety Report 23109866 (Version 1)
Quarter: 2023Q4

REPORT INFORMATION
  Report Type: Spontaneous
  Country: US (occurrence: None)
  Receive Date: 20231024
  Receipt Date: 20231024
  Transmission Date: 20240110
  Serious: Yes (Hospitalization)
  Sender: FDA-Public Use
  Company Number: None

PATIENT
  Age: 74 Year
  Sex: Male
  Weight: 111 kg

DRUGS (2)
  1. INSULIN HUMAN [Suspect]
     Active Substance: INSULIN HUMAN
     Dosage: OTHER STRENGTH : 100 UNIT/ML;?
  2. OXYCODONE [Suspect]
     Active Substance: OXYCODONE

REACTIONS (8)
  - Dizziness [None]
  - Hypoglycaemia [None]
  - Drug abuse [None]
  - Brain natriuretic peptide increased [None]
  - Oedema peripheral [None]
  - Mental status changes [None]
  - Wrong schedule [None]
  - Accidental overdose [None]

NARRATIVE: CASE EVENT DATE: 20230216
